FAERS Safety Report 5349743-6 (Version None)
Quarter: 2007Q2

REPORT INFORMATION
  Report Type: 
  Country: None (occurrence: None)
  Receive Date: 20070607
  Receipt Date: 20070601
  Transmission Date: 20071010
  Serious: Yes (Hospitalization)
  Sender: FDA-Public Use
  Company Number: CA-BRISTOL-MYERS SQUIBB COMPANY-13743000

PATIENT
  Age: 77 Year
  Sex: Male

DRUGS (2)
  1. BLINDED: APIXABAN [Suspect]
     Indication: ACUTE CORONARY SYNDROME
     Dosage: APIXABAN: 01-MAR-2007 TO 23-MAR-2007 (6 TABS) AND 25-MAR-2007 TO ONGOING (6 TABS).
     Route: 048
     Dates: start: 20070301
  2. BLINDED: PLACEBO [Suspect]
     Indication: ACUTE CORONARY SYNDROME
     Dosage: PLACEBO: 01-MAR-2007 TO 23-MAR-2007 AND 25-MAR-2007 TO ONGOING.
     Dates: start: 20070301

REACTIONS (4)
  - ANAEMIA [None]
  - ATRIAL FIBRILLATION [None]
  - GASTROENTERITIS [None]
  - PNEUMONIA [None]
